FAERS Safety Report 7610694-5 (Version None)
Quarter: 2011Q3

REPORT INFORMATION
  Report Type: 
  Country: None (occurrence: None)
  Receive Date: 20110707
  Receipt Date: 20110622
  Transmission Date: 20111222
  Serious: Yes (Death, Life-Threatening, Hospitalization)
  Sender: FDA-Public Use
  Company Number: 2011MA006747

PATIENT
  Age: 42 Year
  Sex: Male

DRUGS (3)
  1. SODIUM CHLORIDE [Suspect]
     Dosage: 250 ML; 1X; IV
     Route: 042
  2. DEXAMETHASONE [Suspect]
     Indication: EPIGLOTTITIS
     Dosage: 20 MG; 1X; IV
     Route: 042
  3. CLINDAMYCIN PHOSPHATE [Suspect]
     Indication: EPIGLOTTITIS
     Dosage: 1.2 G; IV
     Route: 042

REACTIONS (4)
  - ASPHYXIA [None]
  - CARDIO-RESPIRATORY ARREST [None]
  - LARYNGEAL OEDEMA [None]
  - RESPIRATORY FAILURE [None]
